FAERS Safety Report 4352562-0 (Version None)
Quarter: 2004Q2

REPORT INFORMATION
  Report Type: 
  Country: None (occurrence: None)
  Receive Date: 20040427
  Receipt Date: 20040127
  Transmission Date: 20050107
  Serious: No
  Sender: FDA-Public Use
  Company Number: WAES 0401USA01992

PATIENT
  Sex: Female

DRUGS (1)
  1. EMEND [Suspect]
     Indication: PROPHYLACTIC CHEMOTHERAPY
     Dosage: 125MG/1X/PO
     Route: 048

REACTIONS (1)
  - OROPHARYNGEAL SWELLING [None]
